FAERS Safety Report 6642640-5 (Version None)
Quarter: 2010Q1

REPORT INFORMATION
  Report Type: 
  Country: None (occurrence: None)
  Receive Date: 20100319
  Receipt Date: 20100316
  Transmission Date: 20100710
  Serious: Yes (Disabling)
  Sender: FDA-Public Use
  Company Number: AU-MERCK-1003USA02271

PATIENT
  Age: 69 Year
  Sex: Female
  Weight: 70 kg

DRUGS (1)
  1. EZETROL [Suspect]
     Route: 048
     Dates: start: 20091215, end: 20091220

REACTIONS (3)
  - BALANCE DISORDER [None]
  - DEAFNESS [None]
  - DISORIENTATION [None]
